FAERS Safety Report 4818292-3 (Version None)
Quarter: 2005Q4

REPORT INFORMATION
  Report Type: 
  Country: None (occurrence: None)
  Receive Date: 20051102
  Receipt Date: 20051024
  Transmission Date: 20060501
  Serious: Yes (Death)
  Sender: FDA-Public Use
  Company Number: GB-BRISTOL-MYERS SQUIBB COMPANY-13155460

PATIENT
  Age: 63 Year
  Sex: Male

DRUGS (13)
  1. ACETAMINOPHEN [Suspect]
  2. NYSTATIN [Suspect]
  3. SPIRIVA [Suspect]
     Indication: CHRONIC OBSTRUCTIVE PULMONARY DISEASE
  4. BUMETANIDE [Suspect]
  5. HUMALOG [Suspect]
     Dosage: DOSE VALUE:  100 IU/ML
  6. FOSAMAX [Suspect]
  7. HUMULIN [Suspect]
     Dosage: DOSE VALUE:  100 U/ML
  8. HUMULIN M3 [Suspect]
  9. LISINOPRIL [Suspect]
  10. MONTELUKAST [Suspect]
  11. SALBUTAMOL [Suspect]
     Route: 055
  12. SERETIDE [Suspect]
     Dosage: DOSE VALUE:  ^500^
  13. TRAMADOL [Suspect]

REACTIONS (1)
  - LOBAR PNEUMONIA [None]
